FAERS Safety Report 4596803-3 (Version None)
Quarter: 2005Q1

REPORT INFORMATION
  Report Type: 
  Country: None (occurrence: None)
  Receive Date: 20050228
  Receipt Date: 20050210
  Transmission Date: 20050727
  Serious: Yes (Other)
  Sender: FDA-Public Use
  Company Number: DSA_60467_2005

PATIENT
  Age: 35 Year
  Sex: Female

DRUGS (1)
  1. DIERGO-SPRAY [Suspect]
     Indication: MIGRAINE
     Dosage: 2 MG ONCE IN
     Dates: start: 20050113, end: 20050113

REACTIONS (9)
  - DISEASE RECURRENCE [None]
  - ERYTHEMA [None]
  - FACE OEDEMA [None]
  - MIGRAINE [None]
  - NAUSEA [None]
  - PAIN IN EXTREMITY [None]
  - PERIPHERAL COLDNESS [None]
  - VASOSPASM [None]
  - VOMITING [None]
